FAERS Safety Report 5505781-1 (Version None)
Quarter: 2007Q4

REPORT INFORMATION
  Report Type: 
  Country: None (occurrence: None)
  Receive Date: 20071102
  Receipt Date: 20071022
  Transmission Date: 20080405
  Serious: Yes (Other)
  Sender: FDA-Public Use
  Company Number: US-PFIZER INC-2007089495

PATIENT
  Sex: Female
  Weight: 109 kg

DRUGS (10)
  1. LYRICA [Suspect]
     Indication: BACK PAIN
     Dates: start: 20071009, end: 20071009
  2. CORTICOSTEROIDS [Suspect]
     Indication: BACK PAIN
  3. IBUPROFEN [Suspect]
  4. ALLEGRA [Suspect]
  5. ALLEGRA D 24 HOUR [Concomitant]
  6. LIPITOR [Concomitant]
  7. SINGULAIR [Concomitant]
  8. SPIRIVA [Concomitant]
  9. FLUTICASONE PROPIONATE [Concomitant]
  10. PULMICORT [Concomitant]

REACTIONS (4)
  - HYPERSENSITIVITY [None]
  - LIP SWELLING [None]
  - PALPITATIONS [None]
  - THROAT TIGHTNESS [None]
